FAERS Safety Report 9455720 (Version 1)
Quarter: 2013Q3

REPORT INFORMATION
  Report Type: Spontaneous
  Country: US (occurrence: US)
  Receive Date: 20130813
  Receipt Date: 20130813
  Transmission Date: 20140515
  Serious: Yes (Hospitalization, Other)
  Sender: FDA-Public Use
  Company Number: US-AMGEN-USASP2013055660

PATIENT
  Age: 78 Year
  Sex: Female
  Weight: 29.93 kg

DRUGS (10)
  1. ENBREL [Suspect]
     Indication: PRODUCT USED FOR UNKNOWN INDICATION
     Dosage: 25 MG, 2 TIMES/WK
     Route: 058
  2. LOSARTAN                           /01121602/ [Concomitant]
     Dosage: 50 MG, UNK
  3. NITROFURANTIN [Concomitant]
     Dosage: 100 MG, UNK
  4. ASPIRIN [Concomitant]
     Dosage: 325 MG, UNK
  5. ISOSORB                            /07346401/ [Concomitant]
     Dosage: 30 MG, UNK
  6. PRILOSEC                           /00661201/ [Concomitant]
     Dosage: 20 MG, UNK
  7. ATENOLOL [Concomitant]
     Dosage: 25 MG, UNK
  8. PLAVIX [Concomitant]
     Dosage: 75 MG, UNK
  9. PREDNISONE [Concomitant]
     Dosage: 5 MG, UNK
  10. FOLIC ACID [Concomitant]
     Dosage: 5 MG, UNK

REACTIONS (2)
  - Basal cell carcinoma [Unknown]
  - Myocardial infarction [Unknown]
